FAERS Safety Report 5481097-7 (Version None)
Quarter: 2007Q4

REPORT INFORMATION
  Report Type: 
  Country: None (occurrence: None)
  Receive Date: 20071003
  Receipt Date: 20070919
  Transmission Date: 20080405
  Serious: Yes (Other)
  Sender: FDA-Public Use
  Company Number: 100#08#2007-03699

PATIENT
  Age: 41 Year
  Sex: Male

DRUGS (4)
  1. ISONIAZID [Suspect]
     Indication: TUBERCULOSIS
  2. RIFAMPICIN [Concomitant]
  3. ETHAMBUTOL (ETHAMBUTOL) (ETHAMBUTOL) [Concomitant]
  4. PYRAZINAMIDE [Concomitant]

REACTIONS (5)
  - HEMIANOPIA HETERONYMOUS [None]
  - OPTIC NEURITIS [None]
  - SCOTOMA [None]
  - VISUAL ACUITY REDUCED [None]
  - VISUAL EVOKED POTENTIALS ABNORMAL [None]
